FAERS Safety Report 13721596 (Version 1)
Quarter: 2017Q3

REPORT INFORMATION
  Report Type: Spontaneous
  Country: US (occurrence: US)
  Receive Date: 20170706
  Receipt Date: 20170706
  Transmission Date: 20171127
  Serious: Yes (Other)
  Sender: FDA-Public Use
  Company Number: US-ALLERGAN-1727727US

PATIENT
  Age: 60 Year
  Sex: Male

DRUGS (3)
  1. VIAGRA [Suspect]
     Active Substance: SILDENAFIL CITRATE
     Indication: ERECTILE DYSFUNCTION
     Dosage: 100 MG, UNK
     Dates: start: 20170214, end: 20170214
  2. PRILOSEC [Concomitant]
     Active Substance: OMEPRAZOLE MAGNESIUM
     Dosage: UNK
  3. CITALOPRAM HYDROBROMIDE - BP [Suspect]
     Active Substance: CITALOPRAM HYDROBROMIDE
     Indication: PRODUCT USED FOR UNKNOWN INDICATION
     Dosage: UNK
     Dates: start: 201702

REACTIONS (7)
  - Tinnitus [Not Recovered/Not Resolved]
  - Suicidal ideation [Recovered/Resolved]
  - Panic attack [Unknown]
  - Insomnia [Unknown]
  - Deafness [Not Recovered/Not Resolved]
  - Disturbance in attention [Unknown]
  - Visual impairment [Unknown]

NARRATIVE: CASE EVENT DATE: 201702
